FAERS Safety Report 16322322 (Version 1)
Quarter: 2019Q2

REPORT INFORMATION
  Report Type: Spontaneous
  Country: US (occurrence: US)
  Receive Date: 20190411
  Receipt Date: 20190411
  Transmission Date: 20190711
  Serious: No
  Sender: FDA-Public Use
  Company Number: None

PATIENT
  Age: 48 Year
  Sex: Female

DRUGS (1)
  1. DOVE COOL ESSENTIALS ANTIPERSPIRANT [Suspect]
     Active Substance: ALUMINUM CHLOROHYDRATE

REACTIONS (4)
  - Dyspnoea [None]
  - Poor quality sleep [None]
  - Cough [None]
  - Palpitations [None]

NARRATIVE: CASE EVENT DATE: 20190115
